FAERS Safety Report 7455842-5 (Version None)
Quarter: 2011Q2

REPORT INFORMATION
  Report Type: 
  Country: None (occurrence: None)
  Receive Date: 20110503
  Receipt Date: 20110422
  Transmission Date: 20111010
  Serious: Yes (Hospitalization)
  Sender: FDA-Public Use
  Company Number: FR-KINGPHARMUSA00001-K201100488

PATIENT

DRUGS (1)
  1. INTAL [Suspect]

REACTIONS (1)
  - DRUG INTOLERANCE [None]
